FAERS Safety Report 9526300 (Version 2)
Quarter: 2013Q4

REPORT INFORMATION
  Report Type: Spontaneous
  Country: IT (occurrence: IT)
  Receive Date: 20130916
  Receipt Date: 20131205
  Transmission Date: 20140711
  Serious: Yes (Death)
  Sender: FDA-Public Use
  Company Number: IT-MYLANLABS-2013S1019832

PATIENT
  Age: 51 Year
  Sex: Female
  Weight: 69 kg

DRUGS (4)
  1. IRINOTECAN [Suspect]
     Indication: COLORECTAL CANCER METASTATIC
     Dosage: CYCLIC
     Route: 042
     Dates: start: 20130320, end: 20130415
  2. AVASTIN /01555201/ [Suspect]
     Indication: COLORECTAL CANCER METASTATIC
     Dosage: CYCLIC
     Route: 042
     Dates: start: 20130415, end: 20130415
  3. FLUOROURACIL [Suspect]
     Indication: COLORECTAL CANCER METASTATIC
     Dosage: CYCLIC
     Route: 042
     Dates: start: 20130320, end: 20130417
  4. FLUOROURACIL [Suspect]
     Indication: COLORECTAL CANCER METASTATIC
     Dosage: CYCLIC
     Route: 058
     Dates: start: 20130320, end: 20130417

REACTIONS (5)
  - Diarrhoea [Unknown]
  - Vomiting [Unknown]
  - Loss of consciousness [Unknown]
  - Coma [Unknown]
  - Cardiac failure [Fatal]
